FAERS Safety Report 5409872-5 (Version None)
Quarter: 2007Q3

REPORT INFORMATION
  Report Type: 
  Country: None (occurrence: None)
  Receive Date: 20070809
  Receipt Date: 20070731
  Transmission Date: 20080115
  Serious: Yes (Death)
  Sender: FDA-Public Use
  Company Number: GB-PFIZER INC-2007064319

PATIENT
  Age: 19 Year
  Sex: Male

DRUGS (6)
  1. PHENYTOIN [Suspect]
  2. IBUPROFEN TABLETS [Suspect]
  3. CHLORPHENIRAMINE MALEATE [Suspect]
  4. CYCLOBENZAPRINE HCL [Suspect]
  5. LIGNOCAINE [Suspect]
  6. PHENYLPROPANOLAMINE [Suspect]

REACTIONS (3)
  - METABOLIC ACIDOSIS [None]
  - OVERDOSE [None]
  - TACHYCARDIA [None]
